FAERS Safety Report 8363986-9 (Version None)
Quarter: 2012Q2

REPORT INFORMATION
  Report Type: 
  Country: None (occurrence: None)
  Receive Date: 20120516
  Receipt Date: 20120507
  Transmission Date: 20120825
  Serious: Yes (Hospitalization)
  Sender: FDA-Public Use
  Company Number: FR-FRI-1000030480

PATIENT
  Sex: Female

DRUGS (3)
  1. MEMANTINE HCL [Suspect]
     Indication: DEMENTIA
     Dosage: 20 MG
     Dates: start: 20111115
  2. MIANSERINE [Suspect]
     Dosage: 30 MG
     Route: 048
     Dates: start: 20111115
  3. LOXAPINE HCL [Suspect]
     Dosage: 15 GTT
     Route: 048
     Dates: start: 20111115, end: 20120419

REACTIONS (1)
  - BURNING SENSATION [None]
